FAERS Safety Report 9632390 (Version 1)
Quarter: 2013Q4

REPORT INFORMATION
  Report Type: Spontaneous
  Country: US (occurrence: None)
  Receive Date: 20131018
  Receipt Date: 20131018
  Transmission Date: 20140711
  Serious: Yes (Hospitalization)
  Sender: FDA-Public Use
  Company Number: None

PATIENT
  Age: 45 Year
  Sex: Female
  Weight: 65.77 kg

DRUGS (1)
  1. TINDAMAX [Suspect]
     Dosage: 2 PILLS
     Route: 048
     Dates: start: 20130903, end: 20130903

REACTIONS (4)
  - Skin burning sensation [None]
  - Pruritus generalised [None]
  - Swelling face [None]
  - Vomiting [None]
